FAERS Safety Report 7979186-8 (Version None)
Quarter: 2011Q4

REPORT INFORMATION
  Report Type: 
  Country: None (occurrence: None)
  Receive Date: 20111213
  Receipt Date: 20111213
  Transmission Date: 20120403
  Serious: Yes (Hospitalization)
  Sender: FDA-Public Use
  Company Number: None

PATIENT
  Age: 63 Year
  Sex: Male
  Weight: 90.2 kg

DRUGS (1)
  1. AMLODIPINE [Suspect]
     Indication: CARDIAC FAILURE CONGESTIVE
     Dosage: 10 MG EVERY DAY PO
     Route: 048
     Dates: start: 20110914, end: 20110923

REACTIONS (4)
  - DYSPNOEA [None]
  - WEIGHT INCREASED [None]
  - WHEEZING [None]
  - COUGH [None]
